FAERS Safety Report 24208880 (Version 1)
Quarter: 2024Q3

REPORT INFORMATION
  Report Type: Spontaneous
  Country: IN (occurrence: IN)
  Receive Date: 20240814
  Receipt Date: 20240814
  Transmission Date: 20241016
  Serious: Yes (Death, Hospitalization, Other)
  Sender: Steriscience PTE
  Company Number: IN-STERISCIENCE B.V.-2024-ST-001187

PATIENT
  Age: 37 Year
  Sex: Female

DRUGS (13)
  1. MEROPENEM [Suspect]
     Active Substance: MEROPENEM
     Indication: Acute respiratory distress syndrome
     Dosage: UNK
     Route: 065
  2. MEROPENEM [Suspect]
     Active Substance: MEROPENEM
     Indication: Sepsis
  3. MEROPENEM [Suspect]
     Active Substance: MEROPENEM
     Indication: Scrub typhus
  4. DOXYCYCLINE [Suspect]
     Active Substance: DOXYCYCLINE\DOXYCYCLINE HYCLATE
     Indication: Scrub typhus
     Dosage: UNK
     Route: 065
  5. DOXYCYCLINE [Suspect]
     Active Substance: DOXYCYCLINE\DOXYCYCLINE HYCLATE
     Indication: Sepsis
  6. DOXYCYCLINE [Suspect]
     Active Substance: DOXYCYCLINE\DOXYCYCLINE HYCLATE
     Indication: Acute respiratory distress syndrome
  7. ARTESUNATE [Suspect]
     Active Substance: ARTESUNATE
     Indication: Scrub typhus
     Dosage: UNK
     Route: 042
  8. ARTESUNATE [Suspect]
     Active Substance: ARTESUNATE
     Indication: Sepsis
  9. ARTESUNATE [Suspect]
     Active Substance: ARTESUNATE
     Indication: Acute respiratory distress syndrome
  10. TIGECYCLINE [Suspect]
     Active Substance: TIGECYCLINE
     Indication: Scrub typhus
     Dosage: UNK
     Route: 065
  11. TIGECYCLINE [Suspect]
     Active Substance: TIGECYCLINE
     Indication: Sepsis
  12. CASPOFUNGIN [Suspect]
     Active Substance: CASPOFUNGIN
     Indication: Scrub typhus
     Dosage: UNK
     Route: 065
  13. CASPOFUNGIN [Suspect]
     Active Substance: CASPOFUNGIN
     Indication: Sepsis

REACTIONS (1)
  - Drug ineffective for unapproved indication [Fatal]
